FAERS Safety Report 19695037 (Version 2)
Quarter: 2021Q3

REPORT INFORMATION
  Report Type: Spontaneous
  Country: CH (occurrence: CH)
  Receive Date: 20210813
  Receipt Date: 20210908
  Transmission Date: 20211014
  Serious: Yes (Hospitalization, Other)
  Sender: FDA-Public Use
  Company Number: CH-TOPROL-2021000164

PATIENT
  Age: 86 Year
  Sex: Female

DRUGS (23)
  1. DAFALGAN [Suspect]
     Active Substance: ACETAMINOPHEN
     Dosage: 1 GRAM, 3/DAY
     Route: 065
     Dates: end: 20210530
  2. DAFALGAN [Suspect]
     Active Substance: ACETAMINOPHEN
     Dosage: AS NEEDED, 1.0G INTERMITTENT
     Route: 065
     Dates: start: 20210530
  3. MALTOFER [FERRIC HYDROXIDE POLYMALTOSE COMPLEX] [Suspect]
     Active Substance: IRON POLYMALTOSE
     Dosage: 100 MILLIGRAM, 1/DAY
     Route: 065
     Dates: start: 20210601, end: 20210610
  4. RHEUMON [Concomitant]
     Dosage: UNK
     Route: 065
     Dates: end: 20210529
  5. BETALOC ZOK [Suspect]
     Active Substance: METOPROLOL SUCCINATE
     Route: 065
  6. SORTIS [Suspect]
     Active Substance: ATORVASTATIN
     Route: 065
     Dates: start: 2014
  7. COSOPT [Concomitant]
     Active Substance: DORZOLAMIDE HYDROCHLORIDE\TIMOLOL MALEATE
     Dosage: UNK
     Route: 065
  8. ACIDUM FOLICUM [Concomitant]
     Active Substance: FOLIC ACID
     Dosage: UNK
     Dates: start: 20210607
  9. METAMUCIL [Concomitant]
     Active Substance: PLANTAGO SEED
     Dosage: UNK UNK, AS NEEDED INTERMITTENT
     Dates: start: 20210607
  10. ESOMEP [Suspect]
     Active Substance: ESOMEPRAZOLE
     Route: 065
     Dates: end: 20210611
  11. VASCORD HCT [Suspect]
     Active Substance: AMLODIPINE BESYLATE\HYDROCHLOROTHIAZIDE\OLMESARTAN MEDOXOMIL
     Dosage: 40/10/12.5 MILLIGRAM, 1/DAY
     Route: 065
     Dates: start: 20210531
  12. PURSANA [Suspect]
     Active Substance: FIG FRUIT OIL\SORBITOL
     Dosage: 15 MILLILITRE, AS NEEDED15.0ML INTERMITTENT
     Route: 065
     Dates: start: 20210603
  13. CIPROFLOXACIN. [Concomitant]
     Active Substance: CIPROFLOXACIN
     Dosage: UNK
     Dates: start: 20210610, end: 20210617
  14. VITAMIN B12 [Concomitant]
     Active Substance: CYANOCOBALAMIN
     Dosage: UNK
     Dates: start: 20210607
  15. FORTALIS BALSAM [Concomitant]
     Dosage: UNK
     Dates: start: 20210607
  16. CIPRALEX [Suspect]
     Active Substance: ESCITALOPRAM OXALATE
     Dosage: 10 MILLIGRAM, 1/DAY
     Route: 065
     Dates: start: 2014
  17. TEBOKAN [Concomitant]
     Active Substance: GINKGO
     Dosage: UNK
     Route: 065
     Dates: end: 20210529
  18. CLEXANE [Concomitant]
     Active Substance: ENOXAPARIN SODIUM
     Dosage: UNK
     Dates: start: 20210530
  19. ASPIRIN CARDIO [Suspect]
     Active Substance: ASPIRIN
     Dosage: 100 MILLIGRAM, 1/DAY
     Route: 065
     Dates: start: 2014
  20. CALCIMAGON?D3 [Suspect]
     Active Substance: CALCIUM\CHOLECALCIFEROL
     Dosage: 1 DOSAGE FORM, 1/DAY
     Route: 065
     Dates: start: 2017
  21. MORPHINE [Concomitant]
     Active Substance: MORPHINE
     Dosage: UNK
     Dates: start: 20210531, end: 20210608
  22. FUROSEMIDE. [Concomitant]
     Active Substance: FUROSEMIDE
     Dosage: UNK
     Route: 065
     Dates: start: 20210530, end: 20210530
  23. OXYNORM [Concomitant]
     Active Substance: OXYCODONE HYDROCHLORIDE
     Dosage: UNK
     Dates: start: 20210608

REACTIONS (6)
  - Sciatica [Unknown]
  - Occult blood [Unknown]
  - Cardiac failure [Unknown]
  - Pyrexia [Unknown]
  - Diverticulum [Unknown]
  - Diarrhoea [Not Recovered/Not Resolved]

NARRATIVE: CASE EVENT DATE: 20210529
